FAERS Safety Report 8488387-4 (Version None)
Quarter: 2012Q3

REPORT INFORMATION
  Report Type: 
  Country: None (occurrence: None)
  Receive Date: 20120705
  Receipt Date: 20120626
  Transmission Date: 20120928
  Serious: Yes (Hospitalization)
  Sender: FDA-Public Use
  Company Number: US-BAYER-2012-009497

PATIENT
  Age: 44 Year
  Sex: Female
  Weight: 75 kg

DRUGS (6)
  1. YAZ [Suspect]
     Indication: MENSTRUATION IRREGULAR
  2. AZITHROMYCIN [Concomitant]
     Indication: ACUTE SINUSITIS
     Dosage: 250 MG, DAILY
  3. MULTI-VITAMIN [Concomitant]
     Dosage: DAILY
  4. CITRACAL [Concomitant]
  5. YAZ [Suspect]
     Indication: MENORRHAGIA
     Dosage: UNK
     Dates: start: 20070901, end: 20100610
  6. AXERT [Concomitant]
     Indication: MIGRAINE
     Dosage: 12.5 MG, ONCE AS NEEDED
     Dates: start: 20020101, end: 20100604

REACTIONS (12)
  - PULMONARY EMBOLISM [None]
  - INJURY [None]
  - GENERAL PHYSICAL HEALTH DETERIORATION [None]
  - ANXIETY [None]
  - PANIC ATTACK [None]
  - EMOTIONAL DISTRESS [None]
  - ATELECTASIS [None]
  - DEEP VEIN THROMBOSIS [None]
  - OEDEMA PERIPHERAL [None]
  - PAIN IN EXTREMITY [None]
  - FEAR [None]
  - CARDIAC ANEURYSM [None]
